FAERS Safety Report 7337480-8 (Version None)
Quarter: 2011Q1

REPORT INFORMATION
  Report Type: 
  Country: None (occurrence: None)
  Receive Date: 20110308
  Receipt Date: 20110222
  Transmission Date: 20110831
  Serious: Yes (Other)
  Sender: FDA-Public Use
  Company Number: TR-PAR PHARMACEUTICAL, INC-2011SCPR002706

PATIENT
  Age: 62 Year
  Sex: Female

DRUGS (4)
  1. CABERGOLINE [Suspect]
     Indication: ACROMEGALY
     Dosage: 0.5 MG, ONCE DAILY
     Route: 065
  2. METFORMIN [Concomitant]
     Indication: DIABETES MELLITUS
     Dosage: 1000 MG, TWICE DAILY
     Route: 065
  3. SOMATOSTATIN [Concomitant]
     Indication: ACROMEGALY
     Dosage: 30 MG, ONCE MONTHLY
     Route: 030
  4. AMLODIPINE [Concomitant]
     Indication: HYPERTENSION
     Dosage: 5 MG, ONCE DAILY
     Route: 065

REACTIONS (3)
  - LEFT VENTRICULAR HYPERTROPHY [None]
  - TRICUSPID VALVE INCOMPETENCE [None]
  - RIGHT VENTRICULAR FAILURE [None]
